FAERS Safety Report 8965258 (Version 2)
Quarter: 2013Q1

REPORT INFORMATION
  Report Type: Spontaneous
  Country: US (occurrence: US)
  Receive Date: 20121213
  Receipt Date: 20130201
  Transmission Date: 20140127
  Serious: No
  Sender: FDA-Public Use
  Company Number: US-009507513-1212USA004183

PATIENT
  Age: 19 None
  Sex: Female
  Weight: 93.88 kg

DRUGS (1)
  1. IMPLANON [Suspect]
     Indication: CONTRACEPTION
     Dosage: UNK
     Dates: start: 20121109

REACTIONS (1)
  - Metrorrhagia [Not Recovered/Not Resolved]
